FAERS Safety Report 8924427 (Version 1)
Quarter: 2013Q1

REPORT INFORMATION
  Report Type: Spontaneous
  Country: US (occurrence: None)
  Receive Date: 20121121
  Receipt Date: 20121121
  Transmission Date: 20140127
  Serious: Yes (Hospitalization)
  Sender: FDA-Public Use
  Company Number: None

PATIENT
  Age: 53 Year
  Sex: Male
  Weight: 75.75 kg

DRUGS (23)
  1. LENALIDOMIDE [Suspect]
     Indication: PLASMA CELL MYELOMA
     Dosage: 10MG, PO, DAYS 1-28
     Route: 048
     Dates: start: 20111025, end: 20121115
  2. ACYCLOVIR [Concomitant]
  3. ASPIRIN [Concomitant]
  4. ATIVAN [Concomitant]
  5. BACTRIM [Concomitant]
  6. BUSPIRONE [Concomitant]
  7. CALCIUM CARBONATE [Concomitant]
  8. CITALOPRAM [Concomitant]
  9. COMPAZINE [Concomitant]
  10. FLEXERIL [Concomitant]
  11. FOLATE [Concomitant]
  12. LIDOCAINE [Concomitant]
  13. LISINOPRIL [Concomitant]
  14. NEUPOGEN [Concomitant]
  15. NEURONTIN [Concomitant]
  16. OMEPRAZOLE [Concomitant]
  17. OXYCODONE [Concomitant]
  18. PRAZIQUANTEL [Concomitant]
  19. VITAMIN B12 [Concomitant]
  20. VITAMIN B6 [Concomitant]
  21. VITAMIN D3 [Concomitant]
  22. ZOFRAN [Concomitant]
  23. BISPHOSPHONATE [Concomitant]

REACTIONS (3)
  - Abdominal pain [None]
  - Pancreatitis [None]
  - Cholecystitis [None]
